FAERS Safety Report 5138640-7 (Version None)
Quarter: 2006Q4

REPORT INFORMATION
  Report Type: 
  Country: None (occurrence: None)
  Receive Date: 20061030
  Receipt Date: 20061024
  Transmission Date: 20070319
  Serious: Yes (Disabling)
  Sender: FDA-Public Use
  Company Number: RU-GLAXOSMITHKLINE-B0444263A

PATIENT
  Age: 65 Year
  Sex: Female
  Weight: 95 kg

DRUGS (5)
  1. SERETIDE [Suspect]
     Indication: ASTHMA
     Route: 055
  2. ACE INHIBITOR [Concomitant]
     Route: 065
  3. BETA BLOCKER [Concomitant]
     Indication: ANGINA PECTORIS
     Route: 065
  4. HYDROCHLOROTHIAZIDE [Concomitant]
     Route: 065
  5. LEVOTHYROXINE SODIUM [Concomitant]
     Indication: THYROIDITIS
     Route: 065

REACTIONS (2)
  - SACRAL PAIN [None]
  - SPINAL COMPRESSION FRACTURE [None]
